FAERS Safety Report 8242637-8 (Version None)
Quarter: 2012Q1

REPORT INFORMATION
  Report Type: 
  Country: None (occurrence: None)
  Receive Date: 20120329
  Receipt Date: 20120326
  Transmission Date: 20120608
  Serious: Yes (Disabling)
  Sender: FDA-Public Use
  Company Number: PHHY2010IT26264

PATIENT
  Sex: Female

DRUGS (6)
  1. ANTIDEPRESSANTS [Concomitant]
  2. ASPIRIN [Concomitant]
  3. INSULIN [Concomitant]
  4. ANTIHYPERTENSIVES [Concomitant]
  5. ZOMETA [Suspect]
     Dosage: 4 MG, UNK
     Route: 042
     Dates: start: 20070101, end: 20080601
  6. ZOMETA [Suspect]
     Indication: METASTASES TO BONE
     Dosage: 4 MG, UNK
     Route: 042
     Dates: start: 20020101, end: 20041231

REACTIONS (2)
  - JAW FRACTURE [None]
  - OSTEONECROSIS OF JAW [None]
